FAERS Safety Report 5923294-X (Version None)
Quarter: 2008Q4

REPORT INFORMATION
  Report Type: 
  Country: None (occurrence: None)
  Receive Date: 20081020
  Receipt Date: 20081007
  Transmission Date: 20090506
  Serious: Yes (Disabling, Congenital Anomaly)
  Sender: FDA-Public Use
  Company Number: ZA-BAYER-200828393GPV

PATIENT
  Age: 0 Hour
  Sex: Male
  Weight: 3.88 kg

DRUGS (1)
  1. MIRENA [Suspect]
     Indication: POLYCYSTIC OVARIES
     Route: 050

REACTIONS (1)
  - TALIPES [None]
